FAERS Safety Report 17686410 (Version 1)
Quarter: 2020Q2

REPORT INFORMATION
  Report Type: Spontaneous
  Country: US (occurrence: US)
  Receive Date: 20200420
  Receipt Date: 20200420
  Transmission Date: 20200714
  Serious: No
  Sender: FDA-Public Use
  Company Number: US-MATRIXX INITIATIVES, INC.-2083024

PATIENT
  Age: 54 Year
  Sex: Female
  Weight: 86.36 kg

DRUGS (2)
  1. ZICAM COLD REMEDY RAPIDMELTS [Suspect]
     Active Substance: HOMEOPATHICS\ZINC ACETATE ANHYDROUS\ZINC GLUCONATE
     Indication: NASOPHARYNGITIS
     Route: 048
     Dates: start: 20200420, end: 20200420
  2. UNSPECIFIED ACID REFLUX MEDICATION [Concomitant]

REACTIONS (1)
  - Ageusia [None]
